FAERS Safety Report 24684155 (Version 1)
Quarter: 2024Q4

REPORT INFORMATION
  Report Type: Spontaneous
  Country: US (occurrence: US)
  Receive Date: 20241202
  Receipt Date: 20241202
  Transmission Date: 20250114
  Serious: No
  Sender: AMNEAL
  Company Number: US-AMNEAL PHARMACEUTICALS-2024-AMRX-03869

PATIENT

DRUGS (1)
  1. DEXMEDETOMIDINE HYDROCHLORIDE [Suspect]
     Active Substance: DEXMEDETOMIDINE HYDROCHLORIDE
     Indication: Product used for unknown indication
     Dosage: 400 MCG PER 100 ML (4 MCG/ML)
     Route: 042

REACTIONS (3)
  - Product packaging confusion [Unknown]
  - Intercepted product dispensing error [Unknown]
  - No adverse event [Unknown]
